FAERS Safety Report 6254452-5 (Version None)
Quarter: 2009Q3

REPORT INFORMATION
  Report Type: 
  Country: None (occurrence: None)
  Receive Date: 20090702
  Receipt Date: 20090622
  Transmission Date: 20100115
  Serious: Yes (Other)
  Sender: FDA-Public Use
  Company Number: IL-CELGENEUS-082-50794-09050483

PATIENT
  Age: 82 Year
  Sex: Female

DRUGS (7)
  1. VIDAZA [Suspect]
     Route: 058
     Dates: start: 20090315, end: 20090319
  2. VIDAZA [Suspect]
     Route: 058
     Dates: start: 20090419, end: 20090422
  3. VIDAZA [Suspect]
     Route: 058
     Dates: start: 20090611, end: 20090617
  4. NEUPOGEN [Concomitant]
     Indication: DRUG USE FOR UNKNOWN INDICATION
     Route: 065
  5. EPREX [Concomitant]
     Indication: DRUG USE FOR UNKNOWN INDICATION
     Route: 065
  6. RYTHMEX [Concomitant]
     Indication: DRUG USE FOR UNKNOWN INDICATION
     Route: 065
  7. CYMBALTA [Concomitant]
     Indication: DRUG USE FOR UNKNOWN INDICATION
     Route: 065

REACTIONS (1)
  - HEPATIC ENZYME INCREASED [None]
